FAERS Safety Report 9246775 (Version 1)
Quarter: 2013Q2

REPORT INFORMATION
  Report Type: Spontaneous
  Country: US (occurrence: US)
  Receive Date: 20130422
  Receipt Date: 20130422
  Transmission Date: 20140414
  Serious: No
  Sender: FDA-Public Use
  Company Number: US-B.I. PHARMACEUTICALS,INC./RIDGEFIELD-2013-BI-10013BP

PATIENT
  Sex: Female
  Weight: 65 kg

DRUGS (5)
  1. MELOXICAM [Suspect]
     Dosage: 150 MG
     Route: 048
  2. LIPITOR [Concomitant]
     Dosage: 10 MG
  3. SYNTHROID [Concomitant]
     Dosage: 50 MCG
  4. OMEPRAZOL [Concomitant]
     Dosage: 40 MG
  5. ESTROGEN [Concomitant]
     Dosage: 0.5 MG

REACTIONS (2)
  - Anal fistula [Unknown]
  - Blister [Unknown]
